FAERS Safety Report 5980028-0 (Version None)
Quarter: 2008Q4

REPORT INFORMATION
  Report Type: 
  Country: None (occurrence: None)
  Receive Date: 20081126
  Receipt Date: 20081112
  Transmission Date: 20090506
  Serious: Yes (Other)
  Sender: FDA-Public Use
  Company Number: PHBS2008IT06342

PATIENT
  Age: 36 Year
  Sex: Male

DRUGS (2)
  1. VISUDYNE [Suspect]
     Indication: CHOROIDAL NEOVASCULARISATION
  2. FLUORESCEIN [Concomitant]

REACTIONS (2)
  - RETINAL DISORDER [None]
  - VISUAL ACUITY REDUCED [None]
